FAERS Safety Report 8329649-0 (Version None)
Quarter: 2012Q2

REPORT INFORMATION
  Report Type: 
  Country: None (occurrence: None)
  Receive Date: 20120502
  Receipt Date: 20091005
  Transmission Date: 20120825
  Serious: No
  Sender: FDA-Public Use
  Company Number: US-TEVA-2009011069

PATIENT
  Sex: Female
  Weight: 45.4 kg

DRUGS (4)
  1. NUVIGIL [Suspect]
     Dosage: 37.5 MILLIGRAM;
     Route: 048
     Dates: start: 20091004, end: 20091004
  2. NUVIGIL [Suspect]
     Indication: FATIGUE
     Dosage: 75 MILLIGRAM;
     Route: 048
     Dates: start: 20091001, end: 20091004
  3. LEVOTHYROXINE SODIUM [Concomitant]
  4. MULTI-VITAMIN [Concomitant]

REACTIONS (3)
  - INSOMNIA [None]
  - INTENTIONAL DRUG MISUSE [None]
  - NAUSEA [None]
